FAERS Safety Report 19647932 (Version 1)
Quarter: 2021Q3

REPORT INFORMATION
  Report Type: Report from Study
  Country: DE (occurrence: DE)
  Receive Date: 20210803
  Receipt Date: 20210803
  Transmission Date: 20211014
  Serious: Yes (Congenital Anomaly, Other)
  Sender: FDA-Public Use
  Company Number: DE-BIOGEN-2021BI01035498

PATIENT
  Age: 0 Year
  Sex: Male

DRUGS (1)
  1. PLEGRIDY [Suspect]
     Active Substance: PEGINTERFERON BETA-1A
     Indication: MATERNAL EXPOSURE TIMING UNSPECIFIED
     Route: 064
     Dates: start: 20160623, end: 201609

REACTIONS (14)
  - Strabismus congenital [Recovered/Resolved]
  - Premature baby [Unknown]
  - Talipes [Recovered/Resolved]
  - Skull malformation [Not Recovered/Not Resolved]
  - Flatulence [Recovered/Resolved]
  - Dry skin [Unknown]
  - Phimosis [Recovered/Resolved]
  - Iron deficiency [Recovered/Resolved]
  - Hydrocele [Recovered/Resolved]
  - Hyperbilirubinaemia neonatal [Recovered/Resolved]
  - Candida nappy rash [Recovered/Resolved]
  - Acne infantile [Recovered/Resolved]
  - Cephalhaematoma [Recovered/Resolved]
  - Foetal exposure during pregnancy [Recovered/Resolved]

NARRATIVE: CASE EVENT DATE: 2018
